FAERS Safety Report 9697663 (Version 4)
Quarter: 2014Q1

REPORT INFORMATION
  Report Type: Spontaneous
  Country: US (occurrence: US)
  Receive Date: 20131120
  Receipt Date: 20140312
  Transmission Date: 20141002
  Serious: Yes (Hospitalization, Other)
  Sender: FDA-Public Use
  Company Number: US-PFIZER INC-2013329407

PATIENT
  Age: 65 Year
  Sex: Female

DRUGS (14)
  1. SUTENT [Suspect]
     Indication: METASTATIC RENAL CELL CARCINOMA
     Dosage: 50 MG, 1X/DAY
     Dates: start: 20131029
  2. SUTENT [Suspect]
     Dosage: 50 MG, 1X/DAY
     Route: 048
     Dates: start: 20131101, end: 20131117
  3. ATORVASTATIN CALCIUM [Concomitant]
     Dosage: 40 MG, UNK (AT BEDTIME)
     Route: 048
  4. DEXAMETHASONE [Concomitant]
     Dosage: 1 MG, 3X/DAY
  5. LEVETIRACETAM [Concomitant]
     Dosage: UNK
  6. LEVOTHROID [Concomitant]
     Dosage: 112 UG, DAILY
     Route: 048
  7. METOPROLOL SUCCINATE ER [Concomitant]
     Dosage: 25 MG, 2X/DAY
     Route: 048
  8. RANITIDINE HCL [Concomitant]
     Dosage: 300 MG, 2X/DAY
     Route: 048
  9. VITAMIN C ER [Concomitant]
     Dosage: 1000 MG, DAILY
     Route: 048
  10. LISINOPRIL [Concomitant]
     Dosage: 5 MG, DAILY
     Route: 048
  11. CALCIUM + VIT D [Concomitant]
     Dosage: UNK (CALCIUM CARBONATE 600, VITAMIN D 400) 2X/DAY
     Route: 048
  12. FISH OIL [Concomitant]
     Dosage: 1200 MG, DAILY
  13. NITROGLYCERIN [Concomitant]
     Dosage: UNK
     Route: 060
  14. PROCHLORPERAZINE MALEATE [Concomitant]
     Dosage: 10 MG, EVERY 6 HOURS
     Route: 048

REACTIONS (17)
  - Nausea [Not Recovered/Not Resolved]
  - Drug intolerance [Unknown]
  - Vomiting [Unknown]
  - Dehydration [Unknown]
  - Hypertension [Recovering/Resolving]
  - Pain in extremity [Not Recovered/Not Resolved]
  - Cough [Recovered/Resolved]
  - Diarrhoea [Unknown]
  - Asthenia [Not Recovered/Not Resolved]
  - Malaise [Unknown]
  - Decreased appetite [Recovering/Resolving]
  - Headache [Recovered/Resolved]
  - Pallor [Unknown]
  - Emotional distress [Unknown]
  - Alopecia [Unknown]
  - Rash [Recovered/Resolved]
  - Muscular weakness [Recovering/Resolving]
